FAERS Safety Report 6578999-7 (Version None)
Quarter: 2010Q1

REPORT INFORMATION
  Report Type: 
  Country: None (occurrence: None)
  Receive Date: 20100212
  Receipt Date: 20100208
  Transmission Date: 20100710
  Serious: No
  Sender: FDA-Public Use
  Company Number: US-B.I. PHARMACEUTICALS,INC./RIDGEFIELD-2010-BP-01559BP

PATIENT
  Age: 71 Year
  Sex: Male

DRUGS (3)
  1. FLOMAX [Suspect]
     Indication: PROSTATOMEGALY
     Dosage: 0.4 MG
     Route: 048
     Dates: start: 20100104, end: 20100107
  2. FLOMAX [Suspect]
     Dosage: 0.4 MG
     Route: 048
     Dates: start: 20100101, end: 20100101
  3. LISINOPRIL [Concomitant]
     Indication: HYPERTENSION
     Dates: start: 20020101

REACTIONS (2)
  - DIARRHOEA [None]
  - DIZZINESS [None]
